FAERS Safety Report 8927781 (Version 1)
Quarter: 2012Q4

REPORT INFORMATION
  Report Type: 
  Country: US (occurrence: US)
  Receive Date: 20121127
  Receipt Date: 20121127
  Transmission Date: 20130627
  Serious: No
  Sender: FDA-Public Use
  Company Number: US-MYLANLABS-2012S1016216

PATIENT
  Age: 61 Year
  Sex: Female

DRUGS (3)
  1. BUDESONIDE [Suspect]
     Indication: CROHN^S DISEASE
     Route: 048
     Dates: start: 201202, end: 201202
  2. BUDESONIDE [Suspect]
     Indication: CROHN^S DISEASE
     Route: 048
     Dates: start: 201203, end: 201203
  3. BUDESONIDE [Suspect]
     Indication: CROHN^S DISEASE
     Route: 048
     Dates: start: 201207, end: 201207

REACTIONS (5)
  - Hypersensitivity [Recovered/Resolved]
  - Diarrhoea [Recovered/Resolved]
  - Abdominal pain upper [Recovered/Resolved]
  - Nausea [Recovered/Resolved]
  - Flatulence [Recovered/Resolved]
